FAERS Safety Report 5412512-2 (Version None)
Quarter: 2007Q3

REPORT INFORMATION
  Report Type: 
  Country: None (occurrence: None)
  Receive Date: 20070713
  Receipt Date: 20070313
  Transmission Date: 20080115
  Serious: Yes (Hospitalization, Other)
  Sender: FDA-Public Use
  Company Number: US-JNJFOC-20061000446

PATIENT
  Age: 24 Year
  Sex: Female
  Weight: 60.4 kg

DRUGS (2)
  1. ORTHO EVRA [Suspect]
     Indication: DRUG USE FOR UNKNOWN INDICATION
     Dates: start: 20030301, end: 20050801
  2. NEXIUM [Concomitant]

REACTIONS (2)
  - ILIAC ARTERY OCCLUSION [None]
  - MYOCARDIAL INFARCTION [None]
